FAERS Safety Report 6518638-4 (Version None)
Quarter: 2009Q4

REPORT INFORMATION
  Report Type: 
  Country: None (occurrence: None)
  Receive Date: 20091228
  Receipt Date: 20091217
  Transmission Date: 20100525
  Serious: Yes (Death)
  Sender: FDA-Public Use
  Company Number: US-ROCHE-668384

PATIENT
  Sex: Male
  Weight: 80.7 kg

DRUGS (5)
  1. CAPECITABINE [Suspect]
     Route: 048
     Dates: start: 20090903
  2. CAPECITABINE [Suspect]
     Dosage: DOSE AND FORM: I PILL DAILY
     Route: 048
     Dates: start: 20090929
  3. CAPECITABINE [Suspect]
     Route: 048
     Dates: start: 20091030, end: 20091101
  4. ERLOTINIB [Suspect]
     Indication: DRUG USE FOR UNKNOWN INDICATION
     Route: 048
     Dates: start: 20090903, end: 20091101
  5. THALOMID [Concomitant]
     Dosage: INDICATION REPORTED: 10; FREQUENCY: 1 DAILY HS
     Route: 048
     Dates: start: 20091109, end: 20091101

REACTIONS (2)
  - MALIGNANT NEOPLASM PROGRESSION [None]
  - PAIN [None]
